FAERS Safety Report 11908618 (Version 1)
Quarter: 2016Q1

REPORT INFORMATION
  Report Type: Spontaneous
  Country: FR (occurrence: FR)
  Receive Date: 20160111
  Receipt Date: 20160111
  Transmission Date: 20160526
  Serious: Yes (Hospitalization)
  Sender: FDA-Public Use
  Company Number: PHHY2015FR171996

PATIENT
  Age: 19 Year
  Sex: Male

DRUGS (1)
  1. TRAMADOL. [Suspect]
     Active Substance: TRAMADOL
     Indication: BACK PAIN
     Dosage: 350 MG, TID
     Route: 065

REACTIONS (11)
  - Tachycardia [Unknown]
  - Headache [Unknown]
  - Anxiety [Unknown]
  - Tachyphylaxis [Unknown]
  - Drug dependence [Unknown]
  - Withdrawal syndrome [Unknown]
  - Drug abuse [Unknown]
  - Somnolence [Unknown]
  - Sleep disorder [Unknown]
  - Disturbance in attention [Unknown]
  - Paraesthesia [Unknown]
